FAERS Safety Report 9060371 (Version 1)
Quarter: 2013Q1

REPORT INFORMATION
  Report Type: Spontaneous
  Country: US (occurrence: US)
  Receive Date: 20130212
  Receipt Date: 20130212
  Transmission Date: 20140127
  Serious: No
  Sender: FDA-Public Use
  Company Number: US-TEVA-385808USA

PATIENT
  Age: 84 None
  Sex: Male
  Weight: 68.1 kg

DRUGS (7)
  1. PROAIR HFA [Suspect]
     Dosage: 2 PUFFS Q4-6H PRN
     Dates: start: 20130116, end: 20130117
  2. ATENOLOL [Concomitant]
     Route: 048
  3. DIOVAN [Concomitant]
     Route: 048
  4. SIMVASTATIN [Concomitant]
     Route: 048
  5. ASPIRIN [Concomitant]
     Indication: PROPHYLAXIS
     Dosage: 81 MILLIGRAM DAILY;
     Route: 048
  6. MELATONIN [Concomitant]
     Indication: INSOMNIA
     Route: 048
  7. TYLENOL PM [Concomitant]
     Indication: INSOMNIA
     Route: 048

REACTIONS (1)
  - Laryngitis [Recovering/Resolving]
